FAERS Safety Report 5708348-5 (Version None)
Quarter: 2008Q2

REPORT INFORMATION
  Report Type: 
  Country: None (occurrence: None)
  Receive Date: 20080417
  Receipt Date: 20080415
  Transmission Date: 20081010
  Serious: Yes (Life-Threatening, Other)
  Sender: FDA-Public Use
  Company Number: JP-ASTRAZENECA-2008AP01400

PATIENT
  Age: 21495 Day
  Sex: Female
  Weight: 42 kg

DRUGS (5)
  1. DIPRIVAN [Suspect]
     Indication: INDUCTION OF ANAESTHESIA
     Route: 042
     Dates: start: 20080222, end: 20080222
  2. MUSCULAX [Suspect]
     Indication: INDUCTION OF ANAESTHESIA
     Route: 042
     Dates: start: 20080222, end: 20080222
  3. ATROPINE [Concomitant]
     Indication: ANAESTHETIC PREMEDICATION
     Route: 030
     Dates: start: 20080222
  4. ATARAX [Concomitant]
     Indication: ANAESTHETIC PREMEDICATION
     Route: 030
     Dates: start: 20080222
  5. DORMICUM [Concomitant]
     Indication: SEDATION
     Route: 041
     Dates: start: 20020222, end: 20020223

REACTIONS (4)
  - BLOOD PRESSURE INCREASED [None]
  - ERYTHEMA [None]
  - LARYNGEAL OEDEMA [None]
  - TRACHEAL OEDEMA [None]
